FAERS Safety Report 16402067 (Version 1)
Quarter: 2019Q2

REPORT INFORMATION
  Report Type: Spontaneous
  Country: DE (occurrence: DE)
  Receive Date: 20190607
  Receipt Date: 20190607
  Transmission Date: 20190711
  Serious: Yes (Hospitalization, Other)
  Sender: FDA-Public Use
  Company Number: DE-SUN PHARMACEUTICAL INDUSTRIES LTD-2019RR-209839

PATIENT
  Age: 75 Year
  Sex: Female
  Weight: 62 kg

DRUGS (11)
  1. ERBITUX [Suspect]
     Active Substance: CETUXIMAB
     Indication: COLORECTAL CANCER METASTATIC
     Dosage: UNK
     Route: 042
     Dates: start: 20170630
  2. FLUOROURACIL. [Suspect]
     Active Substance: FLUOROURACIL
     Indication: COLORECTAL CANCER METASTATIC
     Dosage: DAILY DOSE: 2800 MG/M2 MILLIGRAM(S)/SQ. METER EVERY 2 WEEKS
     Route: 042
     Dates: start: 20170526
  3. EMEND [Concomitant]
     Active Substance: APREPITANT
     Indication: PRODUCT USED FOR UNKNOWN INDICATION
     Dosage: UNK
     Route: 065
  4. OXALIPLATIN. [Suspect]
     Active Substance: OXALIPLATIN
     Indication: COLORECTAL CANCER METASTATIC
     Dosage: DAILY DOSE: 85 MG/M2 MILLIGRAM(S)/SQ. METER EVERY 2 WEEKS
     Route: 042
     Dates: start: 20170526
  5. ERBITUX [Suspect]
     Active Substance: CETUXIMAB
     Dosage: DAILY DOSE: 500 MG/M2 MILLIGRAM(S)/SQ. METER EVERY 2 WEEKS
     Route: 042
     Dates: start: 20170612, end: 20170612
  6. STEROFUNDIN [Concomitant]
     Active Substance: CALCIUM CHLORIDE\MAGNESIUM CHLORIDE\POTASSIUM CHLORIDE\SODIUM ACETATE\SODIUM CHLORIDE
     Indication: PRODUCT USED FOR UNKNOWN INDICATION
     Dosage: UNK
     Route: 042
  7. MAGNESIUM [Concomitant]
     Active Substance: MAGNESIUM
     Indication: PRODUCT USED FOR UNKNOWN INDICATION
     Dosage: DOSE NOT SPECIFIED (ADDED TO INFUSION OF STEROFUNDIN)
     Route: 065
  8. GLUCOSE [Concomitant]
     Active Substance: DEXTROSE
     Indication: PRODUCT USED FOR UNKNOWN INDICATION
     Dosage: DOSE NOT SPECIFIED (ADDED TO INFUSION OF STEROFUNDIN)
     Route: 065
  9. PALONOSETRON. [Concomitant]
     Active Substance: PALONOSETRON HYDROCHLORIDE
     Indication: PRODUCT USED FOR UNKNOWN INDICATION
     Dosage: 250 (UNITS NOT SPECIFIED) ()
     Route: 042
  10. CALCIUM FOLINAT [Suspect]
     Active Substance: LEUCOVORIN CALCIUM
     Indication: COLORECTAL CANCER METASTATIC
     Dosage: DAILY DOSE: 200 MG/M2 MILLIGRAM(S)/SQ. METER EVERY 2 WEEKS
     Route: 042
     Dates: start: 20170526
  11. CALCIUM [Concomitant]
     Active Substance: CALCIUM
     Indication: PRODUCT USED FOR UNKNOWN INDICATION
     Dosage: DOSE NOT SPECIFIED (ADDED TO INFUSION OF STEROFUNDIN)
     Route: 065

REACTIONS (4)
  - Staphylococcal infection [Not Recovered/Not Resolved]
  - Off label use [Unknown]
  - Stomatitis [Recovered/Resolved]
  - Leukopenia [Recovered/Resolved]

NARRATIVE: CASE EVENT DATE: 20170621
